FAERS Safety Report 12486392 (Version 2)
Quarter: 2016Q2

REPORT INFORMATION
  Report Type: Spontaneous
  Country: JP (occurrence: JP)
  Receive Date: 20160621
  Receipt Date: 20160627
  Transmission Date: 20160815
  Serious: Yes (Other)
  Sender: FDA-Public Use
  Company Number: JP-JNJFOC-20160616646

PATIENT

DRUGS (9)
  1. TEGRETOL [Concomitant]
     Active Substance: CARBAMAZEPINE
     Route: 048
  2. PYRETHIA [Concomitant]
     Active Substance: PROMETHAZINE HYDROCHLORIDE
     Route: 065
  3. RISPERDAL [Suspect]
     Active Substance: RISPERIDONE
     Indication: PRODUCT USED FOR UNKNOWN INDICATION
     Route: 048
  4. RISPERDAL [Suspect]
     Active Substance: RISPERIDONE
     Indication: PRODUCT USED FOR UNKNOWN INDICATION
     Route: 048
  5. BENZALIN [Concomitant]
     Active Substance: NITRAZEPAM
     Route: 048
  6. DEPAKENE [Concomitant]
     Active Substance: VALPROIC ACID
     Route: 048
  7. LAMICTAL [Concomitant]
     Active Substance: LAMOTRIGINE
     Route: 048
  8. LANDSEN [Concomitant]
     Active Substance: CLONAZEPAM
     Route: 048
  9. LEVOTOMIN [Concomitant]
     Active Substance: LEVOMEPROMAZINE
     Route: 065

REACTIONS (5)
  - Epilepsy [Unknown]
  - Drug interaction [Unknown]
  - Affect lability [Unknown]
  - Extrapyramidal disorder [Unknown]
  - Altered state of consciousness [Unknown]
